FAERS Safety Report 26109450 (Version 1)
Quarter: 2025Q4

REPORT INFORMATION
  Report Type: Spontaneous
  Country: GB (occurrence: GB)
  Receive Date: 20251201
  Receipt Date: 20251201
  Transmission Date: 20260118
  Serious: Yes (Other)
  Sender: MYLAN
  Company Number: GB-MYLANLABS-2025M1101044

PATIENT
  Sex: Male

DRUGS (1)
  1. CLOZARIL [Suspect]
     Active Substance: CLOZAPINE
     Indication: Schizophrenia
     Dosage: UNK
     Dates: start: 20251118, end: 20251122

REACTIONS (3)
  - Chest pain [Unknown]
  - Troponin increased [Unknown]
  - Gastrooesophageal reflux disease [Unknown]
